FAERS Safety Report 11278128 (Version 3)
Quarter: 2015Q3

REPORT INFORMATION
  Report Type: Spontaneous
  Country: US (occurrence: US)
  Receive Date: 20150717
  Receipt Date: 20150831
  Transmission Date: 20151125
  Serious: Yes (Death)
  Sender: FDA-Public Use
  Company Number: US-ROCHE-1609443

PATIENT
  Sex: Male

DRUGS (1)
  1. XOLAIR [Suspect]
     Active Substance: OMALIZUMAB
     Indication: ASTHMA
     Route: 058
     Dates: start: 20140502

REACTIONS (5)
  - Deep vein thrombosis [Fatal]
  - Multi-organ failure [Fatal]
  - Cardiac operation [Fatal]
  - Bacteraemia [Fatal]
  - Pulmonary embolism [Fatal]
